FAERS Safety Report 20154844 (Version 1)
Quarter: 2021Q4

REPORT INFORMATION
  Report Type: Spontaneous
  Country: FR (occurrence: FR)
  Receive Date: 20211207
  Receipt Date: 20211207
  Transmission Date: 20220304
  Serious: Yes (Hospitalization)
  Sender: FDA-Public Use
  Company Number: FR-TEVA-2021-FR-1985002

PATIENT
  Age: 67 Year
  Sex: Male

DRUGS (3)
  1. FLUOROURACIL [Suspect]
     Active Substance: FLUOROURACIL
     Indication: Pancreatic carcinoma
     Dosage: 5-FLUOROURACIL
     Route: 042
  2. OXALIPLATIN [Concomitant]
     Active Substance: OXALIPLATIN
     Indication: Pancreatic carcinoma
     Route: 065
  3. IRINOTECAN [Concomitant]
     Active Substance: IRINOTECAN
     Indication: Pancreatic carcinoma
     Route: 065

REACTIONS (1)
  - Toxic leukoencephalopathy [Recovered/Resolved]
